FAERS Safety Report 5274706-9 (Version None)
Quarter: 2007Q1

REPORT INFORMATION
  Report Type: 
  Country: None (occurrence: None)
  Receive Date: 20070320
  Receipt Date: 20070312
  Transmission Date: 20070707
  Serious: Yes (Other)
  Sender: FDA-Public Use
  Company Number: 238100

PATIENT
  Age: 92 Year
  Sex: Female

DRUGS (1)
  1. LUCENTIS [Suspect]
     Indication: DRUG USE FOR UNKNOWN INDICATION
     Dates: start: 20061101, end: 20070201

REACTIONS (4)
  - BRADYPHRENIA [None]
  - IMPAIRED DRIVING ABILITY [None]
  - MENTAL STATUS CHANGES [None]
  - THINKING ABNORMAL [None]
